FAERS Safety Report 13819406 (Version 2)
Quarter: 2018Q1

REPORT INFORMATION
  Report Type: Report from Study
  Country: US (occurrence: US)
  Receive Date: 20170731
  Receipt Date: 20180201
  Transmission Date: 20180508
  Serious: No
  Sender: FDA-Public Use
  Company Number: US-EXELIXIS-CABO-17008848

PATIENT
  Sex: Male

DRUGS (9)
  1. MOVANTIK [Concomitant]
     Active Substance: NALOXEGOL OXALATE
  2. ATIVAN [Concomitant]
     Active Substance: LORAZEPAM
  3. CABOMETYX [Suspect]
     Active Substance: CABOZANTINIB S-MALATE
     Indication: RENAL CANCER
     Dosage: 60 MG, QD
     Route: 048
     Dates: start: 20170405
  4. NEURONTIN [Concomitant]
     Active Substance: GABAPENTIN
  5. CYCLOBENZAPRINE. [Concomitant]
     Active Substance: CYCLOBENZAPRINE
  6. DOCUSATE SODIUM. [Concomitant]
     Active Substance: DOCUSATE SODIUM
  7. MS CONTIN [Concomitant]
     Active Substance: MORPHINE SULFATE
  8. OXYCODONE [Concomitant]
     Active Substance: OXYCODONE
  9. PROMETHAZINE [Concomitant]
     Active Substance: PROMETHAZINE\PROMETHAZINE HYDROCHLORIDE

REACTIONS (1)
  - Erythema [Unknown]
